FAERS Safety Report 6968570-7 (Version None)
Quarter: 2010Q3

REPORT INFORMATION
  Report Type: 
  Country: None (occurrence: None)
  Receive Date: 20100907
  Receipt Date: 20100828
  Transmission Date: 20110219
  Serious: Yes (Hospitalization, Other)
  Sender: FDA-Public Use
  Company Number: DE-ABBOTT-10P-062-0658848-00

PATIENT
  Sex: Female
  Weight: 120 kg

DRUGS (16)
  1. ZEMPLAR [Suspect]
     Indication: HYPERPARATHYROIDISM SECONDARY
     Route: 042
     Dates: start: 20091218
  2. TORASEMID [Concomitant]
     Indication: CARDIAC FAILURE
     Dosage: BID: TUE,THUR,SUN.  1-0-1: MON,WED,FRI.  0-1-1SAT.
  3. CONCOR COR [Concomitant]
     Indication: CARDIAC FAILURE
     Dosage: IN MORNING AND EVENING
  4. ASS RATIOPHARM [Concomitant]
     Indication: PRODUCT USED FOR UNKNOWN INDICATION
     Dosage: IN MORNING, OPD
  5. OSVAREN [Concomitant]
     Indication: HYPERPHOSPHATAEMIA
     Dosage: IN MORNING AND EVENING
  6. ZINKIT [Concomitant]
     Indication: ZINC DEFICIENCY
     Dosage: IN EVENING
  7. LYRICA [Concomitant]
     Indication: ARTHRALGIA
     Dosage: IN EVENING
  8. LEVEMIR [Concomitant]
     Indication: TYPE 1 DIABETES MELLITUS
     Dosage: ACCORDING TO PLAN: 44 IU - 0 - 30IU - 0
  9. NOVORAPID [Concomitant]
     Indication: TYPE 1 DIABETES MELLITUS
     Dosage: ACCORDING TO BLOOD GLUCOSE
  10. SPIRONOLACTONE [Concomitant]
     Indication: CARDIAC FAILURE
  11. NOVALGIN [Concomitant]
     Indication: PAIN IN EXTREMITY
  12. DREISAVIT [Concomitant]
     Indication: HYPOVITAMINOSIS
  13. CRATAEGUS VERLA [Concomitant]
     Indication: PRODUCT USED FOR UNKNOWN INDICATION
  14. NULYTELY [Concomitant]
     Indication: CONSTIPATION
  15. FERRLECIT [Concomitant]
     Indication: IRON DEFICIENCY
     Dosage: 80 MG PER WEEK INFUSION
  16. DEKRISTOL [Concomitant]
     Indication: VITAMIN D DEFICIENCY

REACTIONS (6)
  - CARDIAC FAILURE [None]
  - DIABETIC FOOT [None]
  - DYSPNOEA [None]
  - HYPERTENSIVE HEART DISEASE [None]
  - OEDEMA PERIPHERAL [None]
  - ORTHOPNOEA [None]
